FAERS Safety Report 24084970 (Version 1)
Quarter: 2024Q3

REPORT INFORMATION
  Report Type: Report from Study
  Country: FR (occurrence: FR)
  Receive Date: 20240712
  Receipt Date: 20240712
  Transmission Date: 20241017
  Serious: No
  Sender: PIERRE FABRE MEDICAMENT
  Company Number: FR-PFM-2021-12499

PATIENT
  Age: 2 Year
  Sex: Female

DRUGS (1)
  1. PROPRANOLOL HYDROCHLORIDE [Suspect]
     Active Substance: PROPRANOLOL HYDROCHLORIDE
     Indication: Haemangioma
     Dosage: UNK
     Route: 065

REACTIONS (5)
  - Disease recurrence [Not Recovered/Not Resolved]
  - Blood pressure increased [Recovered/Resolved]
  - Bronchiolitis [Recovered/Resolved]
  - Product use issue [Unknown]
  - Off label use [Unknown]
